FAERS Safety Report 9213506 (Version 1)
Quarter: 2013Q2

REPORT INFORMATION
  Report Type: Spontaneous
  Country: US (occurrence: US)
  Receive Date: 20130405
  Receipt Date: 20130405
  Transmission Date: 20140414
  Serious: Yes (Life-Threatening, Hospitalization, Disabling)
  Sender: FDA-Public Use
  Company Number: US-MYLANLABS-2013S1006873

PATIENT
  Age: 36 Year
  Sex: Male

DRUGS (4)
  1. METOPROLOL [Suspect]
     Indication: SUICIDE ATTEMPT
     Dosage: 10-12 TABLETS
     Route: 048
  2. PROMETHAZINE [Suspect]
     Indication: SUICIDE ATTEMPT
     Dosage: 4-6 TABLETS
     Route: 048
  3. PREGABALIN [Suspect]
     Indication: SUICIDE ATTEMPT
     Dosage: 5-8 CAPSULES
     Route: 048
  4. MECLOZINE HCL [Suspect]
     Indication: SUICIDE ATTEMPT
     Dosage: 12-15 TABLETS
     Route: 048

REACTIONS (19)
  - Unresponsive to stimuli [Recovered/Resolved]
  - Hypotension [Unknown]
  - Bradycardia [Recovering/Resolving]
  - Cardiac arrest [Recovered/Resolved]
  - Overdose [Recovering/Resolving]
  - Toxicity to various agents [Recovering/Resolving]
  - Suicide attempt [Recovering/Resolving]
  - Brain injury [Recovered/Resolved with Sequelae]
  - Blindness [Not Recovered/Not Resolved]
  - Multi-organ failure [Unknown]
  - Drug abuse [None]
  - Respiratory failure [None]
  - Renal failure [None]
  - Hepatic ischaemia [None]
  - Adrenal insufficiency [None]
  - Sepsis [None]
  - Hepatic function abnormal [None]
  - Refusal of treatment by patient [None]
  - Blood pressure fluctuation [None]
